FAERS Safety Report 21120455 (Version 1)
Quarter: 2022Q3

REPORT INFORMATION
  Report Type: Spontaneous
  Country: US (occurrence: None)
  Receive Date: 20220722
  Receipt Date: 20220722
  Transmission Date: 20221026
  Serious: Yes (Death)
  Sender: FDA-Public Use
  Company Number: None

PATIENT
  Age: 69 Year
  Sex: Male
  Weight: 78 kg

DRUGS (2)
  1. REMDESIVIR [Suspect]
     Active Substance: REMDESIVIR
     Indication: COVID-19
     Dosage: 200 MG ONCE IV?
     Route: 042
     Dates: start: 20211123, end: 20211127
  2. BARICITINIB [Suspect]
     Active Substance: BARICITINIB
     Indication: COVID-19
     Dosage: 4 MG EVERY DAY PO
     Route: 048
     Dates: start: 20211123, end: 20211128

REACTIONS (1)
  - Death [None]

NARRATIVE: CASE EVENT DATE: 20211130
